FAERS Safety Report 16347267 (Version 2)
Quarter: 2019Q2

REPORT INFORMATION
  Report Type: Spontaneous
  Country: CA (occurrence: CA)
  Receive Date: 20190523
  Receipt Date: 20190618
  Transmission Date: 20190711
  Serious: Yes (Other)
  Sender: FDA-Public Use
  Company Number: CA-BEH-2019102466

PATIENT
  Age: 72 Year
  Sex: Female

DRUGS (1)
  1. ALBUREX [Suspect]
     Active Substance: ALBUMIN HUMAN
     Indication: HYPOTENSION
     Dosage: 1 VIAL (NOT COMPLETE, FRACTION: 12 ML)
     Route: 065
     Dates: start: 20180805, end: 20180805

REACTIONS (7)
  - Chills [Unknown]
  - Blood pressure increased [Unknown]
  - Heart rate increased [Unknown]
  - Septic shock [Unknown]
  - Respiratory rate increased [Unknown]
  - Escherichia infection [Unknown]
  - Urinary tract infection [Unknown]

NARRATIVE: CASE EVENT DATE: 20180808
